FAERS Safety Report 4674743-9 (Version None)
Quarter: 2005Q2

REPORT INFORMATION
  Report Type: 
  Country: None (occurrence: None)
  Receive Date: 20050525
  Receipt Date: 20050512
  Transmission Date: 20051028
  Serious: Yes (Other)
  Sender: FDA-Public Use
  Company Number: 2005074152

PATIENT
  Age: 31 Month
  Sex: Male
  Weight: 15.4223 kg

DRUGS (2)
  1. CHILDREN'S PEDIACARE NIGHTREST COUGH AND COLD (PSEUDOEPHEDRINE, DEXTRO [Suspect]
     Indication: NASAL CONGESTION
     Dosage: 1 TEASPOONFUL BID, ORAL
     Route: 048
     Dates: start: 20050510, end: 20050512
  2. OXCARBAZEPINE (OXCARBAZEPINE) [Concomitant]

REACTIONS (2)
  - CONDITION AGGRAVATED [None]
  - CONVULSION [None]
